FAERS Safety Report 13470992 (Version 1)
Quarter: 2017Q2

REPORT INFORMATION
  Report Type: Spontaneous
  Country: CH (occurrence: CH)
  Receive Date: 20170424
  Receipt Date: 20170424
  Transmission Date: 20170830
  Serious: Yes (Hospitalization, Other)
  Sender: FDA-Public Use
  Company Number: CH-MACLEODS PHARMACEUTICALS US LTD-MAC2017004823

PATIENT

DRUGS (3)
  1. METFORMIN HYDROCHLORIDE. [Suspect]
     Active Substance: METFORMIN HYDROCHLORIDE
     Indication: TYPE 2 DIABETES MELLITUS
     Dosage: UNK
     Route: 065
  2. INSULIN [Concomitant]
     Active Substance: INSULIN NOS
     Indication: TYPE 2 DIABETES MELLITUS
     Dosage: UNK
     Route: 065
  3. LINAGLIPTIN [Concomitant]
     Active Substance: LINAGLIPTIN
     Indication: TYPE 2 DIABETES MELLITUS
     Dosage: UNK
     Route: 065

REACTIONS (12)
  - Acute kidney injury [Recovering/Resolving]
  - Nausea [Unknown]
  - Vomiting [Unknown]
  - Lactic acidosis [Unknown]
  - Confusional state [Unknown]
  - Fatigue [Unknown]
  - Diarrhoea [Unknown]
  - Tachycardia [Unknown]
  - Hypovolaemia [Unknown]
  - Dyspnoea [Unknown]
  - Shock [Unknown]
  - Metabolic acidosis [Unknown]
